FAERS Safety Report 8217977-9 (Version None)
Quarter: 2012Q1

REPORT INFORMATION
  Report Type: 
  Country: None (occurrence: None)
  Receive Date: 20120319
  Receipt Date: 20120312
  Transmission Date: 20120608
  Serious: Yes (Hospitalization)
  Sender: FDA-Public Use
  Company Number: JP-PFIZER INC-2012066465

PATIENT
  Age: 71 Year
  Sex: Female

DRUGS (10)
  1. KENACORT-A OPHTHALMIC OINTMENT [Suspect]
     Indication: RHEUMATOID ARTHRITIS
     Dosage: 40 MG, AS NEEDED
     Route: 030
  2. MAGNESIUM OXIDE [Concomitant]
  3. ORENCIA [Suspect]
     Indication: RHEUMATOID ARTHRITIS
     Dosage: 500 MG, WEEKLY
     Route: 042
     Dates: start: 20110118
  4. KETOPROFEN [Concomitant]
  5. FOLIC ACID [Concomitant]
  6. METHOTREXATE SODIUM [Suspect]
     Indication: RHEUMATOID ARTHRITIS
     Dosage: 10 MG, WEEKLY
     Route: 048
     Dates: start: 20101026
  7. CINAL [Concomitant]
  8. MEDROL [Suspect]
     Indication: RHEUMATOID ARTHRITIS
     Dosage: 1 MG, 1X/DAY
     Route: 048
  9. AZULFIDINE [Concomitant]
  10. FAMOTIDINE [Concomitant]

REACTIONS (1)
  - PYELONEPHRITIS ACUTE [None]
